FAERS Safety Report 6100878-X (Version None)
Quarter: 2009Q1

REPORT INFORMATION
  Report Type: 
  Country: None (occurrence: None)
  Receive Date: 20090304
  Receipt Date: 20090223
  Transmission Date: 20090719
  Serious: Yes (Other)
  Sender: FDA-Public Use
  Company Number: US-JNJFOC-20090206079

PATIENT
  Age: 77 Year
  Sex: Female
  Weight: 60.33 kg

DRUGS (11)
  1. TYLENOL WARMING COLD MULTI-SYMPTOM NIGHTTIME HONEY LEMON [Suspect]
     Indication: OROPHARYNGEAL PAIN
     Route: 048
  2. TYLENOL WARMING COLD MULTI-SYMPTOM NIGHTTIME HONEY LEMON [Suspect]
     Indication: NASOPHARYNGITIS
     Route: 048
  3. SOTALOL HCL [Concomitant]
     Indication: HEART RATE
  4. LISINOPRIL [Concomitant]
     Indication: HYPERTENSION
  5. OMEPRAZOLE [Concomitant]
     Indication: GASTRIC DISORDER
  6. TRAMADOL HCL [Concomitant]
     Indication: NEURALGIA
  7. WARFARIN SODIUM [Concomitant]
     Indication: ANTICOAGULANT THERAPY
  8. SIMVASTATIN [Concomitant]
     Indication: BLOOD CHOLESTEROL ABNORMAL
  9. CALCIUM PLUS D [Concomitant]
     Indication: BONE DISORDER
  10. VITAMIN B-12 [Concomitant]
     Indication: ROUTINE HEALTH MAINTENANCE
  11. ACTONEL [Concomitant]
     Indication: FRACTURE

REACTIONS (2)
  - HALLUCINATION [None]
  - MUSCLE TWITCHING [None]
